FAERS Safety Report 25592530 (Version 2)
Quarter: 2025Q3

REPORT INFORMATION
  Report Type: Spontaneous
  Country: EU (occurrence: EU)
  Receive Date: 20250722
  Receipt Date: 20250826
  Transmission Date: 20251020
  Serious: Yes (Hospitalization, Disabling, Other)
  Sender: ABBVIE
  Company Number: EU-ABBVIE-6380773

PATIENT
  Age: 42 Year
  Sex: Female
  Weight: 48 kg

DRUGS (3)
  1. UPADACITINIB [Suspect]
     Active Substance: UPADACITINIB
     Indication: Colitis ulcerative
     Route: 048
     Dates: start: 20250702, end: 20250716
  2. CITALOPRAM [Suspect]
     Active Substance: CITALOPRAM
     Indication: Depression
     Route: 048
  3. PENTASA [Concomitant]
     Active Substance: MESALAMINE
     Indication: Product used for unknown indication
     Dosage: PHARMACEUTICAL FORM: ENVELOPES?FORM STRENGTH: 4 G
     Route: 048

REACTIONS (9)
  - Cerebrovascular accident [Not Recovered/Not Resolved]
  - Disorientation [Unknown]
  - Fatigue [Unknown]
  - Diarrhoea [Unknown]
  - Clostridium difficile infection [Unknown]
  - Paralysis [Not Recovered/Not Resolved]
  - Depressive symptom [Unknown]
  - Myocardial infarction [Not Recovered/Not Resolved]
  - Hemiplegia [Not Recovered/Not Resolved]

NARRATIVE: CASE EVENT DATE: 20250701
